FAERS Safety Report 5715769-3 (Version None)
Quarter: 2008Q2

REPORT INFORMATION
  Report Type: 
  Country: None (occurrence: None)
  Receive Date: 20080422
  Receipt Date: 20080407
  Transmission Date: 20081010
  Serious: Yes (Other)
  Sender: FDA-Public Use
  Company Number: 2008S1004402

PATIENT
  Age: 31 Year
  Sex: Female

DRUGS (7)
  1. SALBUTAMOL (SALBUTAMOL) [Suspect]
     Indication: DRUG USE FOR UNKNOWN INDICATION
     Dosage: 1 PUF; INHALATION
     Route: 055
  2. FLUTICASONE PROPIONATE [Suspect]
     Indication: ASTHMA
     Dosage: ; INHALATION
     Route: 055
  3. AMINOPHYLLINE [Concomitant]
  4. CETRIZINE [Concomitant]
  5. PREDNISOLONE [Concomitant]
  6. FENOTEROL [Concomitant]
  7. CEFUROXIME [Concomitant]

REACTIONS (2)
  - ABORTION INDUCED [None]
  - DRUG EXPOSURE DURING PREGNANCY [None]
